FAERS Safety Report 5225103-3 (Version None)
Quarter: 2007Q1

REPORT INFORMATION
  Report Type: 
  Country: None (occurrence: None)
  Receive Date: 20070131
  Receipt Date: 20070124
  Transmission Date: 20070707
  Serious: Yes (Other)
  Sender: FDA-Public Use
  Company Number: US-SANOFI-SYNTHELABO-A03200700650

PATIENT
  Age: 81 Year
  Sex: Female

DRUGS (4)
  1. PLAVIX [Suspect]
     Indication: DRUG USE FOR UNKNOWN INDICATION
     Dosage: UNK
     Route: 048
     Dates: start: 20010101, end: 20030101
  2. STOMACH PILL [Concomitant]
     Dosage: UNK
     Route: 048
  3. THYROID PILL [Concomitant]
     Dosage: UNK
     Route: 048
  4. BLOOD PRESSURE PILL [Concomitant]
     Dosage: UNK
     Route: 048

REACTIONS (3)
  - FALL [None]
  - FEMUR FRACTURE [None]
  - THROMBOSIS [None]
